FAERS Safety Report 8326137-2 (Version None)
Quarter: 2012Q2

REPORT INFORMATION
  Report Type: 
  Country: None (occurrence: None)
  Receive Date: 20120501
  Receipt Date: 20100611
  Transmission Date: 20120825
  Serious: No
  Sender: FDA-Public Use
  Company Number: US-TEVA-2010003190

PATIENT
  Sex: Female
  Weight: 81.72 kg

DRUGS (2)
  1. SAVELLA [Concomitant]
     Indication: FIBROMYALGIA
  2. NUVIGIL [Suspect]
     Indication: CIRCADIAN RHYTHM SLEEP DISORDER
     Dosage: 250 MILLIGRAM;
     Route: 048
     Dates: start: 20100611

REACTIONS (1)
  - NAUSEA [None]
